FAERS Safety Report 16253461 (Version 2)
Quarter: 2020Q4

REPORT INFORMATION
  Report Type: Spontaneous
  Country: US (occurrence: US)
  Receive Date: 20190430
  Receipt Date: 20201001
  Transmission Date: 20210113
  Serious: Yes (Other)
  Sender: FDA-Public Use
  Company Number: US-TEVA-2019-US-1041723

PATIENT
  Sex: Female

DRUGS (7)
  1. SPIRONOLACTONE. [Concomitant]
     Active Substance: SPIRONOLACTONE
  2. FLECAINIDE [Concomitant]
     Active Substance: FLECAINIDE
  3. XARELTO [Concomitant]
     Active Substance: RIVAROXABAN
  4. LOSARTAN. [Concomitant]
     Active Substance: LOSARTAN
  5. CLONIDINE TDS TEVA [Suspect]
     Active Substance: CLONIDINE
     Indication: HYPERTENSION
     Route: 062
     Dates: start: 201902
  6. METOPROLOL. [Concomitant]
     Active Substance: METOPROLOL
  7. VITAMIN B12 [Concomitant]
     Active Substance: CYANOCOBALAMIN

REACTIONS (7)
  - Application site vesicles [Unknown]
  - Rash [Recovered/Resolved]
  - Application site pruritus [Unknown]
  - Blood pressure increased [Unknown]
  - Skin burning sensation [Unknown]
  - Application site exfoliation [Unknown]
  - Application site erythema [Unknown]

NARRATIVE: CASE EVENT DATE: 201902
